FAERS Safety Report 7207432-7 (Version None)
Quarter: 2011Q1

REPORT INFORMATION
  Report Type: 
  Country: None (occurrence: None)
  Receive Date: 20110103
  Receipt Date: 20101203
  Transmission Date: 20110831
  Serious: No
  Sender: FDA-Public Use
  Company Number: US-PFIZER INC-2010117372

PATIENT
  Sex: Male

DRUGS (6)
  1. CARVEDILOL [Suspect]
     Indication: ARRHYTHMIA
  2. CARVEDILOL [Interacting]
     Dosage: UNK
     Route: 048
  3. LIPITOR [Interacting]
     Dosage: UNK
     Dates: start: 20070101
  4. VALSARTAN [Interacting]
     Dosage: UNK
  5. CARVEDILOL [Interacting]
     Dosage: 3.125 MG IN THE MORNING, 6.25 MG IN THE EVENING
     Route: 048
     Dates: start: 20091001
  6. SOTALOL [Interacting]
     Dosage: UNK

REACTIONS (4)
  - DRUG INTERACTION [None]
  - FATIGUE [None]
  - ASTHENIA [None]
  - DYSPNOEA [None]
